FAERS Safety Report 17871564 (Version 2)
Quarter: 2023Q2

REPORT INFORMATION
  Report Type: Other
  Country: CA (occurrence: CA)
  Receive Date: 20200608
  Receipt Date: 20230529
  Transmission Date: 20230721
  Serious: Yes (Death)
  Sender: FDA-Public Use
  Company Number: CA-ASTELLAS-2020US019216

PATIENT

DRUGS (8)
  1. TACROLIMUS [Suspect]
     Active Substance: TACROLIMUS
     Indication: Foetal exposure during pregnancy
     Dosage: UNK UNK, UNKNOWN FREQ.
     Route: 064
  2. DIPHENHYDRAMINE [Suspect]
     Active Substance: DIPHENHYDRAMINE
     Indication: Foetal exposure during pregnancy
     Route: 064
  3. HYDROMORPHONE HYDROCHLORIDE [Suspect]
     Active Substance: HYDROMORPHONE HYDROCHLORIDE
     Indication: Foetal exposure during pregnancy
     Dosage: UNK UNK, UNKNOWN FREQ.
     Route: 064
  4. HYDROXYZINE [Suspect]
     Active Substance: HYDROXYZINE HYDROCHLORIDE
     Indication: Foetal exposure during pregnancy
     Route: 064
  5. LORAZEPAM [Suspect]
     Active Substance: LORAZEPAM
     Indication: Foetal exposure during pregnancy
     Dosage: UNK UNK, UNKNOWN FREQ.
     Route: 064
  6. METOCLOPRAMIDE [Suspect]
     Active Substance: METOCLOPRAMIDE
     Indication: Foetal exposure during pregnancy
     Dosage: UNK UNK, UNKNOWN FREQ.
     Route: 064
  7. ONDANSETRON [Suspect]
     Active Substance: ONDANSETRON
     Indication: Foetal exposure during pregnancy
     Dosage: UNK UNK, UNKNOWN FREQ.
     Route: 064
  8. THIAMINE HYDROCHLORIDE [Suspect]
     Active Substance: THIAMINE HYDROCHLORIDE
     Indication: Foetal exposure during pregnancy
     Dosage: UNK UNK, UNKNOWN FREQ.
     Route: 064

REACTIONS (2)
  - Premature baby [Fatal]
  - Foetal exposure during pregnancy [Unknown]
